FAERS Safety Report 8418742 (Version 2)
Quarter: 2012Q4

REPORT INFORMATION
  Report Type: 
  Country: IT (occurrence: IT)
  Receive Date: 20120221
  Receipt Date: 20120921
  Transmission Date: 20130627
  Serious: Yes (Hospitalization, Disabling)
  Sender: FDA-Public Use
  Company Number: IT-GLAXOSMITHKLINE-B0782916A

PATIENT
  Age: 46 Year
  Sex: Female

DRUGS (7)
  1. WELLBUTRIN [Suspect]
     Indication: WEIGHT DECREASED
     Dosage: 150MG Per day
     Route: 048
     Dates: start: 20111101
  2. FUROSEMIDE [Suspect]
     Indication: WEIGHT DECREASED
     Dosage: 9MG Per day
     Route: 048
     Dates: start: 20111101
  3. METFORMIN HCL [Suspect]
     Indication: WEIGHT DECREASED
     Dosage: 300MG Per day
     Route: 048
     Dates: start: 20111101
  4. FUCUS VESICULOSUS [Suspect]
     Indication: WEIGHT DECREASED
     Dosage: 3MG Per day
     Route: 048
     Dates: start: 20111101
  5. SYNEPHRINE TARTRATE, DL- [Suspect]
     Indication: WEIGHT DECREASED
     Dosage: 120MG Per day
     Route: 048
     Dates: start: 20111101
  6. EPHEDRINE [Suspect]
     Indication: WEIGHT DECREASED
     Dosage: 135MG Per day
     Route: 048
     Dates: start: 20111101
  7. DEANOL ACETAMIDOBENZOATE [Suspect]
     Indication: WEIGHT DECREASED
     Dosage: 180MG Per day
     Route: 048
     Dates: start: 20111101

REACTIONS (2)
  - Ischaemic stroke [Recovered/Resolved with Sequelae]
  - Aphasia [Recovered/Resolved with Sequelae]
